FAERS Safety Report 17045305 (Version 1)
Quarter: 2019Q4

REPORT INFORMATION
  Report Type: Spontaneous
  Country: US (occurrence: US)
  Receive Date: 20191118
  Receipt Date: 20191118
  Transmission Date: 20200122
  Serious: Yes (Other)
  Sender: FDA-Public Use
  Company Number: US-ENDO PHARMACEUTICALS INC-2019-103863

PATIENT
  Sex: Female

DRUGS (1)
  1. ALPRAZOLAM. [Suspect]
     Active Substance: ALPRAZOLAM
     Indication: ANXIETY
     Dosage: 1 DF, FOUR TIMES A DAY PRN
     Route: 048

REACTIONS (5)
  - Foreign body in gastrointestinal tract [Unknown]
  - Drug dependence [Unknown]
  - Mouth injury [Recovered/Resolved]
  - Nasopharyngitis [Unknown]
  - Product contamination physical [Unknown]

NARRATIVE: CASE EVENT DATE: 2019
